FAERS Safety Report 6148668-6 (Version None)
Quarter: 2009Q2

REPORT INFORMATION
  Report Type: 
  Country: None (occurrence: None)
  Receive Date: 20090408
  Receipt Date: 20090401
  Transmission Date: 20091009
  Serious: Yes (Hospitalization)
  Sender: FDA-Public Use
  Company Number: SE-JNJCH-2009009037

PATIENT
  Sex: Female

DRUGS (5)
  1. MAGNECYL [Suspect]
     Indication: MUSCULOSKELETAL PAIN
     Route: 048
  2. BRUFEN [Suspect]
     Indication: MUSCULOSKELETAL PAIN
     Dosage: TEXT:UNSPECIFIED
     Route: 048
  3. OMEPRAZOL [Concomitant]
     Indication: DRUG USE FOR UNKNOWN INDICATION
     Dosage: TEXT:UNSPECIFIED
     Route: 065
  4. TRAMADOL [Concomitant]
     Indication: DRUG USE FOR UNKNOWN INDICATION
     Dosage: TEXT:UNSPECIFIED
     Route: 065
  5. SOBRIL [Concomitant]
     Indication: DRUG USE FOR UNKNOWN INDICATION
     Dosage: TEXT:5 MG
     Route: 065

REACTIONS (1)
  - GASTROINTESTINAL HAEMORRHAGE [None]
